FAERS Safety Report 24538758 (Version 1)
Quarter: 2024Q4

REPORT INFORMATION
  Report Type: Spontaneous
  Country: DE (occurrence: DE)
  Receive Date: 20241023
  Receipt Date: 20241023
  Transmission Date: 20250115
  Serious: Yes (Hospitalization, Other)
  Sender: SANDOZ
  Company Number: DE-NOVPHSZ-PHHY2019DE125800

PATIENT
  Age: 37 Year
  Sex: Female
  Weight: 66 kg

DRUGS (6)
  1. CIPROFLOXACIN [Suspect]
     Active Substance: CIPROFLOXACIN
     Indication: Pelvic inflammatory disease
     Dosage: 500 MG, Q12H (1-0-1)
     Route: 048
     Dates: start: 20181218
  2. CIPROFLOXACIN [Suspect]
     Active Substance: CIPROFLOXACIN
     Indication: Pyelonephritis
     Dosage: 1000 MG, QD
     Route: 048
     Dates: start: 20181129, end: 20190122
  3. CIPROFLOXACIN [Suspect]
     Active Substance: CIPROFLOXACIN
     Indication: Urinary tract infection
     Dosage: 500 MG, QID
     Route: 042
  4. CIPROFLOXACIN [Suspect]
     Active Substance: CIPROFLOXACIN
     Dosage: 500 MG, QD
     Route: 048
  5. CIPROFLOXACIN [Suspect]
     Active Substance: CIPROFLOXACIN
     Dosage: UNK
     Route: 065
  6. CIPROFLOXACIN [Suspect]
     Active Substance: CIPROFLOXACIN
     Dosage: 250 MG, Q12H (1-0-1)
     Route: 048

REACTIONS (33)
  - Somnolence [Not Recovered/Not Resolved]
  - Restlessness [Not Recovered/Not Resolved]
  - Tenderness [Not Recovered/Not Resolved]
  - Neuralgia [Unknown]
  - Adverse reaction [Unknown]
  - Tongue discomfort [Unknown]
  - Malaise [Unknown]
  - Disturbance in attention [Unknown]
  - Somatic dysfunction [Not Recovered/Not Resolved]
  - Performance status decreased [Not Recovered/Not Resolved]
  - Abdominal tenderness [Not Recovered/Not Resolved]
  - Cardiovascular disorder [Not Recovered/Not Resolved]
  - Body temperature increased [Unknown]
  - Paraesthesia [Unknown]
  - Muscle tightness [Unknown]
  - Paraesthesia [Recovering/Resolving]
  - Dizziness [Unknown]
  - Decreased appetite [Unknown]
  - Hypoaesthesia [Unknown]
  - Asthenia [Not Recovered/Not Resolved]
  - Chest pain [Not Recovered/Not Resolved]
  - Hyperhidrosis [Unknown]
  - Hypoaesthesia [Not Recovered/Not Resolved]
  - Pain [Unknown]
  - Abdominal pain upper [Unknown]
  - Pyrexia [Not Recovered/Not Resolved]
  - Burning sensation [Recovering/Resolving]
  - Mitochondrial cytopathy [Not Recovered/Not Resolved]
  - Cardiac fibrillation [Not Recovered/Not Resolved]
  - Exercise tolerance decreased [Not Recovered/Not Resolved]
  - Abdominal pain [Not Recovered/Not Resolved]
  - Chest pain [Not Recovered/Not Resolved]
  - Paraesthesia [Not Recovered/Not Resolved]

NARRATIVE: CASE EVENT DATE: 20181218
